FAERS Safety Report 20264537 (Version 4)
Quarter: 2022Q2

REPORT INFORMATION
  Report Type: Report from Study
  Country: GR (occurrence: GR)
  Receive Date: 20211231
  Receipt Date: 20220528
  Transmission Date: 20220721
  Serious: Yes (Other)
  Sender: FDA-Public Use
  Company Number: GR-AMGEN-GRCNI2021206766

PATIENT
  Age: 23 Year
  Sex: Female

DRUGS (15)
  1. BLINATUMOMAB [Suspect]
     Active Substance: BLINATUMOMAB
     Indication: Acute lymphocytic leukaemia
     Dosage: 9 MICROGRAM, QD
     Route: 042
     Dates: start: 20211005
  2. FILGRASTIM [Concomitant]
     Active Substance: FILGRASTIM
     Dosage: 30 UNK
     Dates: start: 20211012, end: 20211027
  3. DEXAMETHASONE [Concomitant]
     Active Substance: DEXAMETHASONE
     Dosage: 20 MILLIGRAM
     Dates: start: 20211108, end: 20211108
  4. PRIMPERAN [Concomitant]
     Active Substance: METOCLOPRAMIDE HYDROCHLORIDE
     Dosage: 1 UNK
     Dates: start: 20211022, end: 20211029
  5. RAMIPRIL [Concomitant]
     Active Substance: RAMIPRIL
     Dosage: 1.25 GRAM
     Dates: start: 20211020, end: 20220124
  6. BISOPROLOL FUMARATE [Concomitant]
     Active Substance: BISOPROLOL FUMARATE
     Dosage: 1.25 GRAM
     Dates: start: 20211020, end: 20220122
  7. NOXAFIL [Concomitant]
     Active Substance: POSACONAZOLE
     Dosage: 3 UNK
     Dates: start: 20200109, end: 20220124
  8. AMOXIL [AMOXICILLIN SODIUM] [Concomitant]
     Dosage: 500 MILLIGRAM
     Dates: start: 20211025, end: 20220120
  9. PIPERACILLIN SODIUM\TAZOBACTAM SODIUM [Concomitant]
     Active Substance: PIPERACILLIN SODIUM\TAZOBACTAM SODIUM
     Dosage: 4.5 GRAM
     Dates: start: 20210930, end: 20211025
  10. AVELOX [Concomitant]
     Active Substance: MOXIFLOXACIN HYDROCHLORIDE
     Dosage: 400 MILLIGRAM
     Dates: start: 20210930, end: 20211011
  11. ZOVIRAX [Concomitant]
     Active Substance: ACYCLOVIR
     Dosage: 2 UNK
     Dates: start: 20210116, end: 20220124
  12. SULFAMETHOXAZOLE\TRIMETHOPRIM [Concomitant]
     Active Substance: SULFAMETHOXAZOLE\TRIMETHOPRIM
     Dosage: 1 UNK
     Dates: start: 20201217, end: 20220124
  13. FOLIC ACID [Concomitant]
     Active Substance: FOLIC ACID
     Dosage: 1 UNK
     Dates: start: 20201207, end: 20220124
  14. TARGOCID [Concomitant]
     Active Substance: TEICOPLANIN
     Dosage: 400 MILLIGRAM
     Dates: start: 20211020, end: 20211025
  15. CHOLECALCIFEROL [Concomitant]
     Active Substance: CHOLECALCIFEROL
     Dosage: 25000 INTERNATIONAL UNIT
     Dates: start: 20211102, end: 20220124

REACTIONS (1)
  - Hepatotoxicity [Recovered/Resolved]

NARRATIVE: CASE EVENT DATE: 20211110
